FAERS Safety Report 8806731 (Version 1)
Quarter: 2012Q4

REPORT INFORMATION
  Report Type: 
  Country: FR (occurrence: FR)
  Receive Date: 20120925
  Receipt Date: 20120925
  Transmission Date: 20130627
  Serious: Yes (Hospitalization)
  Sender: FDA-Public Use
  Company Number: PHHY2012FR081525

PATIENT
  Age: 77 Year
  Sex: Female

DRUGS (1)
  1. ITRACONAZOLE [Suspect]
     Indication: ANTIFUNGAL TREATMENT
     Dosage: 200 mg, QD
     Route: 048
     Dates: start: 200806

REACTIONS (5)
  - Phaehyphomycosis [Recovered/Resolved]
  - Alternaria infection [Recovered/Resolved]
  - Skin mass [Recovered/Resolved]
  - Lymphopenia [Recovered/Resolved]
  - Hypogammaglobulinaemia [Recovered/Resolved]
